FAERS Safety Report 4415634-8 (Version None)
Quarter: 2004Q3

REPORT INFORMATION
  Report Type: 
  Country: None (occurrence: None)
  Receive Date: 20040730
  Receipt Date: 20040723
  Transmission Date: 20050211
  Serious: Yes (Death)
  Sender: FDA-Public Use
  Company Number: 2004UW15662

PATIENT
  Age: 19 Year
  Sex: Male

DRUGS (5)
  1. SEROQUEL [Suspect]
     Dosage: 100 MG TID PO
     Route: 048
  2. ABILIFY [Suspect]
  3. ZYPREXA [Suspect]
  4. PAXIL [Suspect]
  5. ZANTAC [Suspect]

REACTIONS (3)
  - ANXIETY [None]
  - DECREASED APPETITE [None]
  - SLEEP DISORDER [None]
